FAERS Safety Report 8174568-6 (Version None)
Quarter: 2012Q1

REPORT INFORMATION
  Report Type: 
  Country: None (occurrence: None)
  Receive Date: 20120227
  Receipt Date: 20120217
  Transmission Date: 20120608
  Serious: Yes (Hospitalization, Other)
  Sender: FDA-Public Use
  Company Number: 1000028536

PATIENT
  Age: 92 Year
  Sex: Female

DRUGS (7)
  1. ARICEPT [Concomitant]
  2. NAMENDA [Suspect]
     Indication: DEMENTIA ALZHEIMER'S TYPE
     Dosage: 20  MG (20 MG, 1 IN 1 D),ORAL
     Route: 048
     Dates: start: 20110101, end: 20120209
  3. TOPROL(METOPROLOL SUCCINATE)(METOPROLOL SUCCINATE) [Concomitant]
  4. LIPITOR [Concomitant]
  5. FUROSEMIDE [Concomitant]
  6. NAMENDA [Suspect]
     Indication: DEMENTIA ALZHEIMER'S TYPE
     Dosage: 10 MG (10 MG, 1 IN 1 D),ORAL
     Route: 048
     Dates: start: 20100101, end: 20110101
  7. ENALAPRIL MALEATE [Concomitant]

REACTIONS (6)
  - MYOCARDIAL INFARCTION [None]
  - CONVULSION [None]
  - CONFUSIONAL STATE [None]
  - TOOTH ABSCESS [None]
  - AMNESIA [None]
  - CONDITION AGGRAVATED [None]
